FAERS Safety Report 8965507 (Version 3)
Quarter: 2013Q1

REPORT INFORMATION
  Report Type: Spontaneous
  Country: US (occurrence: None)
  Receive Date: 20121205
  Receipt Date: 20130128
  Transmission Date: 20140127
  Serious: Yes (Hospitalization)
  Sender: FDA-Public Use
  Company Number: 2012-1226

PATIENT
  Age: 75 Year
  Sex: Male

DRUGS (7)
  1. KYPROLIS [Suspect]
     Indication: PLASMA CELL MYELOMA
     Dosage: (35 MG, 2 IN 1 WK)
     Route: 042
     Dates: start: 20121002, end: 20121113
  2. COUMADIN (WARFARIN SODIUM) (WARFARIN SODIUM) [Concomitant]
  3. ALBUTEROL (SALBUTAMOL) (SALBUTAMOL) [Concomitant]
  4. SYMBICORT (FORMOTEROL FUMARATE) (FORMOTEROL FUMARATE) [Concomitant]
  5. ZOFRAN (ONDANSETRON) (ONDANSETRON) [Concomitant]
  6. LORTAB (PARACETAMOL) (PARACETAMOL) [Concomitant]
  7. PROCRIT [Concomitant]

REACTIONS (2)
  - Migraine [None]
  - Renal failure [None]
